FAERS Safety Report 5893878-6 (Version None)
Quarter: 2008Q3

REPORT INFORMATION
  Report Type: 
  Country: None (occurrence: None)
  Receive Date: 20080923
  Receipt Date: 20071127
  Transmission Date: 20090109
  Serious: No
  Sender: FDA-Public Use
  Company Number: US-ASTRAZENECA-2007UW27106

PATIENT
  Sex: Female

DRUGS (3)
  1. SEROQUEL [Suspect]
  2. LITHIUM CARBONATE [Concomitant]
  3. DEPAKOTE [Concomitant]

REACTIONS (1)
  - THROAT TIGHTNESS [None]
